FAERS Safety Report 20948677 (Version 1)
Quarter: 2022Q2

REPORT INFORMATION
  Report Type: Spontaneous
  Country: US (occurrence: None)
  Receive Date: 20220612
  Receipt Date: 20220612
  Transmission Date: 20220721
  Serious: No
  Sender: FDA-Public Use
  Company Number: 2022A211763

PATIENT
  Sex: Male
  Weight: 90.7 kg

DRUGS (1)
  1. BUDESONIDE\FORMOTEROL\GLYCOPYRRONIUM [Suspect]
     Active Substance: BUDESONIDE\FORMOTEROL\GLYCOPYRRONIUM
     Indication: Emphysema
     Dosage: 160/9.0/4.8 MCG, 2 INHALATIONS 2 TIMES A DAY
     Route: 055

REACTIONS (3)
  - Dyspnoea [Unknown]
  - Product use in unapproved indication [Unknown]
  - Drug ineffective [Unknown]
